FAERS Safety Report 19025130 (Version 1)
Quarter: 2021Q1

REPORT INFORMATION
  Report Type: Spontaneous
  Country: US (occurrence: US)
  Receive Date: 20210317
  Receipt Date: 20210317
  Transmission Date: 20210420
  Serious: Yes (Other)
  Sender: FDA-Public Use
  Company Number: None

PATIENT
  Age: 51 Year
  Sex: Female
  Weight: 76.5 kg

DRUGS (2)
  1. ZYRTEC [Concomitant]
     Active Substance: CETIRIZINE HYDROCHLORIDE
  2. FLONASE SENSIMIST ALLERGY RELIEF [Suspect]
     Active Substance: FLUTICASONE FUROATE
     Indication: SEASONAL ALLERGY
     Dosage: ?          OTHER ROUTE:SPRAY IN NOSE?
     Dates: start: 20210317

REACTIONS (8)
  - Rhinorrhoea [None]
  - Fatigue [None]
  - Flushing [None]
  - Influenza like illness [None]
  - Disturbance in attention [None]
  - Pulmonary congestion [None]
  - Headache [None]
  - Ear discomfort [None]

NARRATIVE: CASE EVENT DATE: 20210317
